FAERS Safety Report 7039254-4 (Version None)
Quarter: 2010Q4

REPORT INFORMATION
  Report Type: 
  Country: None (occurrence: None)
  Receive Date: 20101012
  Receipt Date: 20101005
  Transmission Date: 20110411
  Serious: No
  Sender: FDA-Public Use
  Company Number: US-PFIZER INC-2010126459

PATIENT
  Sex: Male

DRUGS (5)
  1. CHANTIX [Suspect]
     Indication: SMOKING CESSATION THERAPY
     Dosage: 0.5 MG, 1X/DAY
     Route: 048
     Dates: start: 20100601
  2. CHANTIX [Suspect]
     Dosage: 1 MG, 2X/DAY
     Route: 048
     Dates: end: 20100901
  3. SPIRIVA [Concomitant]
     Indication: ASTHMA
     Dosage: UNK
     Route: 055
  4. ADVAIR DISKUS 100/50 [Concomitant]
     Indication: ASTHMA
     Dosage: 50/500MCG DAILY
     Route: 055
  5. PREDNISONE [Concomitant]
     Indication: ASTHMA
     Dosage: 10 MG, 1X/DAY

REACTIONS (2)
  - DRY SKIN [None]
  - RASH [None]
